FAERS Safety Report 23586353 (Version 1)
Quarter: 2024Q1

REPORT INFORMATION
  Report Type: Spontaneous
  Country: US (occurrence: None)
  Receive Date: 20240301
  Receipt Date: 20240301
  Transmission Date: 20240409
  Serious: Yes (Other)
  Sender: FDA-Public Use
  Company Number: None

PATIENT
  Age: 61 Year
  Sex: Female
  Weight: 92.25 kg

DRUGS (22)
  1. OZEMPIC [Suspect]
     Active Substance: SEMAGLUTIDE
     Indication: Obesity
     Dosage: OTHER QUANTITY : 3 INJECTION(S);?OTHER FREQUENCY : PER WEEK;?
     Route: 058
  2. ALPRAZOLAM [Concomitant]
  3. DOXEPIN [Concomitant]
  4. PROPRANOLOL [Concomitant]
     Active Substance: PROPRANOLOL HYDROCHLORIDE
  5. VYVANSE [Concomitant]
     Active Substance: LISDEXAMFETAMINE DIMESYLATE
  6. TRAZODONE [Concomitant]
     Active Substance: TRAZODONE HYDROCHLORIDE
  7. ESZOPICLONE [Concomitant]
     Active Substance: ESZOPICLONE
  8. ROSUVASTATIN [Concomitant]
     Active Substance: ROSUVASTATIN
  9. LAMOTRIGINE [Concomitant]
     Active Substance: LAMOTRIGINE
  10. BUPROPION [Concomitant]
  11. LEVOTHYROXINE [Concomitant]
     Active Substance: LEVOTHYROXINE\LEVOTHYROXINE SODIUM
  12. ARIPIPRAZOLE [Concomitant]
     Active Substance: ARIPIPRAZOLE
  13. FLUOXETINE [Concomitant]
     Active Substance: FLUOXETINE HYDROCHLORIDE
  14. OMEPRAZOLE [Concomitant]
  15. VITAMIN B12 [Concomitant]
     Active Substance: CYANOCOBALAMIN
  16. VITAMIN C [Concomitant]
     Active Substance: ASCORBIC ACID
  17. VITAMIN D [Concomitant]
     Active Substance: VITAMIN D NOS
  18. azo bladder [Concomitant]
  19. COENZYME Q10 [Concomitant]
     Active Substance: DIETARY SUPPLEMENT\UBIDECARENONE
  20. CALCIUM [Concomitant]
  21. HERBALS\TURMERIC [Concomitant]
     Active Substance: HERBALS\TURMERIC
  22. multi vitamin [Concomitant]

REACTIONS (4)
  - Depression [None]
  - Anxiety [None]
  - Frustration tolerance decreased [None]
  - Anger [None]

NARRATIVE: CASE EVENT DATE: 20231226
